FAERS Safety Report 6795328-4 (Version None)
Quarter: 2010Q2

REPORT INFORMATION
  Report Type: 
  Country: None (occurrence: None)
  Receive Date: 20100624
  Receipt Date: 20100624
  Transmission Date: 20101027
  Serious: No
  Sender: FDA-Public Use
  Company Number: None

PATIENT
  Age: 71 Year
  Sex: Female
  Weight: 56.6996 kg

DRUGS (1)
  1. ACTONEL [Suspect]
     Indication: OSTEOPOROSIS
     Dosage: 1 TABLET 1 X MONTH.
     Dates: start: 20090101, end: 20100101

REACTIONS (7)
  - BACK PAIN [None]
  - CHEST PAIN [None]
  - ERUCTATION [None]
  - MUSCULOSKELETAL PAIN [None]
  - NECK PAIN [None]
  - OROPHARYNGEAL PAIN [None]
  - PAIN IN JAW [None]
